FAERS Safety Report 7258892-7 (Version None)
Quarter: 2011Q1

REPORT INFORMATION
  Report Type: 
  Country: None (occurrence: None)
  Receive Date: 20110129
  Receipt Date: 20100611
  Transmission Date: 20110831
  Serious: No
  Sender: FDA-Public Use
  Company Number: US-ABBOTT-10P-163-0650889-00

PATIENT
  Age: 71 Year
  Sex: Female

DRUGS (14)
  1. ASA [Concomitant]
     Indication: PRODUCT USED FOR UNKNOWN INDICATION
  2. TEKURINA [Concomitant]
     Indication: BLOOD PRESSURE
  3. LAVORA [Concomitant]
     Indication: BLOOD CHOLESTEROL
  4. VITAMIN E [Concomitant]
     Indication: PRODUCT USED FOR UNKNOWN INDICATION
  5. ALENDRONATE SODIUM [Concomitant]
     Indication: BONE DISORDER
  6. BYSTOLIC [Concomitant]
     Indication: BLOOD PRESSURE
     Dosage: 1/2 IN THE MORNING, 1/2 AT NIGHT
  7. HUMIRA [Suspect]
     Indication: RHEUMATOID ARTHRITIS
     Dates: start: 20100501
  8. AMLODIPINE BESYLATE [Concomitant]
     Indication: PRODUCT USED FOR UNKNOWN INDICATION
     Dosage: 1/2 IN THE MORNING, 1/2 AT NIGHT
  9. MTX [Concomitant]
     Indication: RHEUMATOID ARTHRITIS
     Dosage: 8 TABLETS EVERY FRIDAY
  10. GLUCOSAMINE [Concomitant]
     Indication: PRODUCT USED FOR UNKNOWN INDICATION
  11. SYNTHROID GENERIC [Concomitant]
     Indication: PRODUCT USED FOR UNKNOWN INDICATION
  12. ZEGERID [Concomitant]
     Indication: PRODUCT USED FOR UNKNOWN INDICATION
  13. CALCIUM WITH VITAMIN [Concomitant]
     Indication: PRODUCT USED FOR UNKNOWN INDICATION
  14. MULTI-VITAMIN [Concomitant]
     Indication: PRODUCT USED FOR UNKNOWN INDICATION

REACTIONS (3)
  - RASH MACULAR [None]
  - PRURITUS [None]
  - DISCOMFORT [None]
